FAERS Safety Report 14664211 (Version 1)
Quarter: 2018Q1

REPORT INFORMATION
  Report Type: Spontaneous
  Country: US (occurrence: US)
  Receive Date: 20180321
  Receipt Date: 20180321
  Transmission Date: 20180509
  Serious: No
  Sender: FDA-Public Use
  Company Number: US-PFIZER INC-2018114069

PATIENT
  Age: 69 Year
  Sex: Female
  Weight: 64.86 kg

DRUGS (2)
  1. XELJANZ XR [Suspect]
     Active Substance: TOFACITINIB CITRATE
     Dosage: 11 MG, DAILY (11MG ONE TABLET BY MOUTH DAILY)
     Route: 048
     Dates: start: 20171112
  2. XELJANZ XR [Suspect]
     Active Substance: TOFACITINIB CITRATE
     Indication: RHEUMATOID ARTHRITIS
     Dosage: 11 MG, DAILY (11MG ONE TABLET BY MOUTH DAILY)
     Route: 048
     Dates: end: 20171004

REACTIONS (1)
  - Drug ineffective [Not Recovered/Not Resolved]
